FAERS Safety Report 8418242-7 (Version None)
Quarter: 2012Q2

REPORT INFORMATION
  Report Type: 
  Country: None (occurrence: None)
  Receive Date: 20120531
  Receipt Date: 20120515
  Transmission Date: 20120825
  Serious: Yes (Hospitalization, Other)
  Sender: FDA-Public Use
  Company Number: DKLU1081012

PATIENT
  Age: 16 Month
  Sex: Female

DRUGS (2)
  1. ONFI [Suspect]
     Indication: INFANTILE SPASMS
  2. LEVETIRACETAM [Suspect]
     Indication: INFANTILE SPASMS

REACTIONS (3)
  - SWELLING FACE [None]
  - COMA BLISTER [None]
  - BRONCHIOLITIS [None]
